FAERS Safety Report 18359587 (Version 1)
Quarter: 2020Q4

REPORT INFORMATION
  Report Type: Spontaneous
  Country: PT (occurrence: PT)
  Receive Date: 20201008
  Receipt Date: 20201008
  Transmission Date: 20210114
  Serious: Yes (Death, Other)
  Sender: FDA-Public Use
  Company Number: PT-ACCORD-204517

PATIENT
  Age: 72 Year
  Sex: Male

DRUGS (2)
  1. PITAVASTATIN. [Suspect]
     Active Substance: PITAVASTATIN CALCIUM
     Indication: DYSLIPIDAEMIA
     Route: 065
  2. ATORVASTATIN/ATORVASTATIN CALCIUM [Suspect]
     Active Substance: ATORVASTATIN CALCIUM
     Indication: DYSLIPIDAEMIA
     Route: 065

REACTIONS (7)
  - Weight decreased [Fatal]
  - Gait disturbance [Fatal]
  - Asthenia [Fatal]
  - Muscular weakness [Fatal]
  - Myalgia [Fatal]
  - Decreased appetite [Fatal]
  - Immune-mediated myositis [Fatal]
